FAERS Safety Report 9319939 (Version 1)
Quarter: 2013Q2

REPORT INFORMATION
  Report Type: Spontaneous
  Country: DE (occurrence: DE)
  Receive Date: 20130530
  Receipt Date: 20130530
  Transmission Date: 20140414
  Serious: Yes (Life-Threatening, Hospitalization)
  Sender: FDA-Public Use
  Company Number: DE-MYLANLABS-2013S1011023

PATIENT
  Age: 14 Year
  Sex: Female

DRUGS (1)
  1. CLOZAPINE [Suspect]
     Indication: OVERDOSE
     Dosage: APPROX 62.5 MG/KG
     Route: 048

REACTIONS (11)
  - Overdose [Recovering/Resolving]
  - Agitation [Unknown]
  - Coma [Recovering/Resolving]
  - Respiratory depression [Unknown]
  - Convulsion [Unknown]
  - Tachycardia [Unknown]
  - Pneumonia aspiration [Unknown]
  - Pyrexia [Unknown]
  - Pancreatitis [Unknown]
  - Rhabdomyolysis [Unknown]
  - Renal failure [Unknown]
